FAERS Safety Report 13309588 (Version 1)
Quarter: 2017Q1

REPORT INFORMATION
  Report Type: Report from Study
  Country: US (occurrence: US)
  Receive Date: 20170308
  Receipt Date: 20170308
  Transmission Date: 20170428
  Serious: No
  Sender: FDA-Public Use
  Company Number: US-AMGEN-USASL2016038974

PATIENT
  Age: 82 Year
  Sex: Female

DRUGS (1)
  1. SENSIPAR [Suspect]
     Active Substance: CINACALCET HYDROCHLORIDE
     Indication: THYROID DISORDER
     Dosage: 30 MG, QD
     Route: 048
     Dates: start: 2012

REACTIONS (4)
  - Malaise [Unknown]
  - Sinusitis [Unknown]
  - Dysphonia [Unknown]
  - Pain [Unknown]

NARRATIVE: CASE EVENT DATE: 201603
